FAERS Safety Report 5750887-5 (Version None)
Quarter: 2008Q2

REPORT INFORMATION
  Report Type: 
  Country: None (occurrence: None)
  Receive Date: 20080528
  Receipt Date: 20080520
  Transmission Date: 20081010
  Serious: Yes (Other)
  Sender: FDA-Public Use
  Company Number: US-ASTRAZENECA-2008UW08757

PATIENT
  Age: 80 Year
  Sex: Male

DRUGS (22)
  1. SYMBICORT [Suspect]
     Dosage: 160/4.5 UG
     Route: 055
  2. AMIDOPYRINE [Suspect]
  3. AMIODARONE [Concomitant]
  4. THIAZIDE [Concomitant]
  5. FUROSEMIDE [Concomitant]
  6. DIGOXIN [Concomitant]
  7. DILTIAZEM [Concomitant]
  8. AVODART [Concomitant]
  9. ACIPHEX [Concomitant]
  10. HYTRIN [Concomitant]
  11. SPIRIVA [Concomitant]
  12. VERAMYST [Concomitant]
  13. SINGULAIR [Concomitant]
  14. LOPENEX [Concomitant]
  15. SIMVASTATIN [Concomitant]
  16. POTASSIUM CHLORIDE [Concomitant]
  17. VITAMINS [Concomitant]
  18. ALLEGRA [Concomitant]
  19. XALATAN [Concomitant]
  20. HYDROCODONE BITARTRATE [Concomitant]
  21. COMBIVENT [Concomitant]
  22. OXYGEN [Concomitant]

REACTIONS (2)
  - ELECTROCARDIOGRAM QT PROLONGED [None]
  - SYNCOPE [None]
